FAERS Safety Report 24686798 (Version 1)
Quarter: 2024Q4

REPORT INFORMATION
  Report Type: Spontaneous
  Country: FR (occurrence: FR)
  Receive Date: 20241202
  Receipt Date: 20241202
  Transmission Date: 20250114
  Serious: Yes (Hospitalization)
  Sender: FRESENIUS KABI
  Company Number: None

PATIENT
  Age: 66 Year
  Sex: Male
  Weight: 89 kg

DRUGS (18)
  1. CARBOPLATIN [Suspect]
     Active Substance: CARBOPLATIN
     Indication: Lung adenocarcinoma
     Dosage: C1D1 AUC5
     Route: 042
     Dates: start: 20240711, end: 20240711
  2. CARBOPLATIN [Suspect]
     Active Substance: CARBOPLATIN
     Dosage: C2D1 AUC5
     Route: 042
     Dates: start: 20240801, end: 20240801
  3. CARBOPLATIN [Suspect]
     Active Substance: CARBOPLATIN
     Dosage: C3D1 AUC5
     Route: 042
     Dates: start: 20240822, end: 20240822
  4. CARBOPLATIN [Suspect]
     Active Substance: CARBOPLATIN
     Dosage: AUC5 C1 AFTER INTERCURE
     Route: 042
     Dates: start: 20241017, end: 20241017
  5. PEMETREXED [Suspect]
     Active Substance: PEMETREXED
     Indication: Lung adenocarcinoma
     Dosage: 500 MG/M?
     Route: 042
     Dates: start: 20240711, end: 20240711
  6. PEMETREXED [Suspect]
     Active Substance: PEMETREXED
     Dosage: 500 MG/M?
     Route: 042
     Dates: start: 20240801, end: 20240801
  7. PEMETREXED [Suspect]
     Active Substance: PEMETREXED
     Dosage: 500 MG/M?
     Route: 042
     Dates: start: 20240822, end: 20240822
  8. PEMETREXED [Suspect]
     Active Substance: PEMETREXED
     Dosage: 500 MG/M? AFTER INTERCURE
     Route: 042
     Dates: start: 20241017, end: 20241017
  9. PIPERACILLIN AND TAZOBACTAM [Concomitant]
     Active Substance: PIPERACILLIN SODIUM\TAZOBACTAM SODIUM
     Indication: Febrile neutropenia
     Dosage: 1-1-1-1
     Route: 042
     Dates: start: 20241102, end: 20241103
  10. ACETAMINOPHEN [Concomitant]
     Active Substance: ACETAMINOPHEN
     Indication: Product used for unknown indication
     Dosage: SELF-MEDICATION
     Route: 048
     Dates: start: 20241102, end: 20241102
  11. FOLIC ACID [Concomitant]
     Active Substance: FOLIC ACID
     Indication: Product used for unknown indication
     Route: 048
     Dates: start: 20240912
  12. PREDNISONE [Concomitant]
     Active Substance: PREDNISONE
     Indication: Chemotherapy side effect prophylaxis
     Dosage: THE DAY BEFORE AND THE DAY OF TREATMENT WITH PEMETREXED
     Route: 048
     Dates: start: 20240912
  13. ONDANSETRON [Concomitant]
     Active Substance: ONDANSETRON
     Indication: Chemotherapy side effect prophylaxis
     Dosage: PREMEDICATION OF CHEMOTHERAPY
     Route: 048
  14. POLYETHYLENE GLYCOL 4000 [Concomitant]
     Active Substance: POLYETHYLENE GLYCOL 4000
     Indication: Constipation
     Dosage: IF NECESSARY
     Route: 048
     Dates: start: 20241102
  15. PHOSPHONEUROS, oral solution drops [Concomitant]
     Indication: Hypophosphataemia
     Dosage: 60 DROPS 1-0-1
     Route: 048
     Dates: start: 20241102
  16. CEFTRIAXONE [Concomitant]
     Active Substance: CEFTRIAXONE
     Indication: Febrile neutropenia
     Dosage: 1-0-0
     Route: 042
     Dates: start: 20241104, end: 20241109
  17. LOVENOX 4000 UI anti-Xa/0,4 ml, solution for injection in ampoule [Concomitant]
     Indication: Thrombosis prophylaxis
     Dosage: 0-0-1
     Route: 058
     Dates: start: 20241103
  18. NEFOPAM HYDROCHLORIDE [Concomitant]
     Active Substance: NEFOPAM HYDROCHLORIDE
     Indication: Analgesic intervention supportive therapy
     Dosage: IF NECESSARY, MAX 80MG/D
     Route: 048
     Dates: start: 20241102

REACTIONS (1)
  - Hepatic cytolysis [Recovering/Resolving]

NARRATIVE: CASE EVENT DATE: 20241102
